FAERS Safety Report 25240414 (Version 1)
Quarter: 2025Q2

REPORT INFORMATION
  Report Type: Spontaneous
  Country: RS (occurrence: RS)
  Receive Date: 20250425
  Receipt Date: 20250425
  Transmission Date: 20250716
  Serious: Yes (Other)
  Sender: BAYER HEALTHCARE PHARMACEUTICALS INC.
  Company Number: RS-BAYER-2025A056556

PATIENT
  Sex: Male

DRUGS (1)
  1. ULTRAVIST [Suspect]
     Active Substance: IOPROMIDE
     Indication: Computerised tomogram heart
     Dates: start: 20250417, end: 20250417

REACTIONS (7)
  - Blood pressure decreased [None]
  - Chest discomfort [None]
  - Dyspnoea [None]
  - Vomiting [None]
  - Erythema [None]
  - Scleral hyperaemia [None]
  - Hyperhidrosis [None]

NARRATIVE: CASE EVENT DATE: 20250417
